FAERS Safety Report 5146832-6 (Version None)
Quarter: 2006Q4

REPORT INFORMATION
  Report Type: 
  Country: None (occurrence: None)
  Receive Date: 20061107
  Receipt Date: 20061107
  Transmission Date: 20070319
  Serious: Yes (Hospitalization)
  Sender: FDA-Public Use
  Company Number: None

PATIENT
  Sex: Male
  Weight: 173 kg

DRUGS (2)
  1. ERBITUX [Suspect]
     Indication: NEOPLASM MALIGNANT
     Dosage: 500MG IV WEEKLY
     Route: 042
     Dates: start: 20060822
  2. ALIMTA [Suspect]
     Dosage: 400 MG IV EVER 3 WEEKS
     Route: 042
     Dates: start: 20060829

REACTIONS (2)
  - ILL-DEFINED DISORDER [None]
  - MUCOSAL INFLAMMATION [None]
